FAERS Safety Report 16713664 (Version 1)
Quarter: 2019Q3

REPORT INFORMATION
  Report Type: Spontaneous
  Country: US (occurrence: US)
  Receive Date: 20190819
  Receipt Date: 20190819
  Transmission Date: 20191004
  Serious: No
  Sender: FDA-Public Use
  Company Number: US-009507513-1908USA006667

PATIENT
  Age: 79 Year
  Sex: Male

DRUGS (2)
  1. ELOCON [Suspect]
     Active Substance: MOMETASONE FUROATE
     Indication: EOSINOPHILIC PUSTULAR FOLLICULITIS
     Dosage: UNK
     Route: 061
  2. TACROLIMUS. [Suspect]
     Active Substance: TACROLIMUS
     Indication: EOSINOPHILIC PUSTULAR FOLLICULITIS
     Dosage: UNK
     Route: 061

REACTIONS (1)
  - Therapeutic product effect incomplete [Unknown]
